FAERS Safety Report 15230036 (Version 1)
Quarter: 2018Q3

REPORT INFORMATION
  Report Type: Spontaneous
  Country: US (occurrence: US)
  Receive Date: 20180802
  Receipt Date: 20180802
  Transmission Date: 20181010
  Serious: Yes (Other)
  Sender: FDA-Public Use
  Company Number: US-ACCORD-062743

PATIENT
  Age: 63 Year
  Sex: Female
  Weight: 53.97 kg

DRUGS (13)
  1. TYLENOL [Concomitant]
     Active Substance: ACETAMINOPHEN
     Dates: start: 20140407
  2. PARAPLATIN [Suspect]
     Active Substance: CARBOPLATIN
     Indication: BREAST CANCER
     Dosage: 6 CYCLES EVERY 3 WEEKS
     Route: 042
     Dates: start: 20140408, end: 20140721
  3. HERCEPTIN [Concomitant]
     Active Substance: TRASTUZUMAB
     Indication: BREAST CANCER
     Dates: start: 20170407
  4. FOLIC ACID. [Concomitant]
     Active Substance: FOLIC ACID
     Dates: start: 19870101
  5. CRESTOR [Concomitant]
     Active Substance: ROSUVASTATIN CALCIUM
  6. NEULASTA [Concomitant]
     Active Substance: PEGFILGRASTIM
     Dates: start: 20160409
  7. ENBREL [Concomitant]
     Active Substance: ETANERCEPT
  8. DOCETAXEL ACCORD [Suspect]
     Active Substance: DOCETAXEL
     Indication: BREAST CANCER
     Dosage: DOSE: 115 MG 6 CYCLES EVERY 3 WEEKS,??STRENGTH: 160 MG 20 MG/ML
     Route: 042
     Dates: start: 20140408, end: 20140721
  9. EMEND [Concomitant]
     Active Substance: APREPITANT
     Dates: start: 20140408
  10. METHOTREXATE. [Concomitant]
     Active Substance: METHOTREXATE
     Dates: start: 19870101
  11. CELEBREX [Concomitant]
     Active Substance: CELECOXIB
     Dates: start: 19970101
  12. TAMOXIFEN [Concomitant]
     Active Substance: TAMOXIFEN
     Dates: start: 20140101
  13. DECADRON [Concomitant]
     Active Substance: DEXAMETHASONE
     Dates: start: 20140407

REACTIONS (1)
  - Alopecia [Not Recovered/Not Resolved]

NARRATIVE: CASE EVENT DATE: 2014
